FAERS Safety Report 21109668 (Version 2)
Quarter: 2022Q3

REPORT INFORMATION
  Report Type: Spontaneous
  Country: US (occurrence: US)
  Receive Date: 20220721
  Receipt Date: 20220808
  Transmission Date: 20221027
  Serious: Yes (Death)
  Sender: FDA-Public Use
  Company Number: US-TEVA-2022-US-2055603

PATIENT

DRUGS (7)
  1. BUSULFAN [Suspect]
     Active Substance: BUSULFAN
     Indication: Bone marrow conditioning regimen
     Dosage: FROM DAY -9 TO DAY -6 GIVEN EVERY 6H TARGETED FOR AN AUC OF 800-1200 TMOL MIN/L [SIC]
     Route: 042
  2. METHOTREXATE [Suspect]
     Active Substance: METHOTREXATE
     Indication: Prophylaxis against graft versus host disease
     Dosage: ON DAY +1, 15 MG/M2
     Route: 042
  3. METHOTREXATE [Suspect]
     Active Substance: METHOTREXATE
     Dosage: ON DAY +3, +6 AND +11, 10 MG/M2
     Route: 042
  4. CYCLOPHOSPHAMIDE [Suspect]
     Active Substance: CYCLOPHOSPHAMIDE
     Indication: Bone marrow conditioning regimen
     Dosage: 50 MG/KG DAILY; ADMINISTERED FROM DAY -5 TO DAY -2
     Route: 042
  5. ALEMTUZUMAB [Suspect]
     Active Substance: ALEMTUZUMAB
     Indication: Bone marrow conditioning regimen
     Dosage: WEIGHT BASED ALEMTUZUMAB ON DAY -5 THROUGH DAY -3 OR DAY -2.
     Route: 042
  6. CYCLOSPORINE [Suspect]
     Active Substance: CYCLOSPORINE
     Indication: Prophylaxis against graft versus host disease
     Dosage: STARTED FOR GVHD PROPHYLAXIS ON DAY -2 TILL DISCHARGE (SCHEDULED)
     Route: 042
  7. CYCLOSPORINE [Suspect]
     Active Substance: CYCLOSPORINE
     Dosage: STARTED AT DISCHARGE AND SCHEDULED TO CONTINUE FOR AT LEAST 6 MONTHS AFTER HCT
     Route: 048

REACTIONS (1)
  - Disseminated tuberculosis [Fatal]
